FAERS Safety Report 6163320-9 (Version None)
Quarter: 2009Q2

REPORT INFORMATION
  Report Type: 
  Country: None (occurrence: None)
  Receive Date: 20090422
  Receipt Date: 20090417
  Transmission Date: 20091009
  Serious: Yes (Other)
  Sender: FDA-Public Use
  Company Number: US-ASTRAZENECA-2008UW13257

PATIENT
  Age: 65 Year
  Sex: Female
  Weight: 62.6 kg

DRUGS (3)
  1. ARIMIDEX [Suspect]
     Indication: BREAST CANCER FEMALE
     Route: 048
  2. CALCIUM [Concomitant]
  3. MULTI-VITAMINS [Concomitant]

REACTIONS (5)
  - CHONDROPATHY [None]
  - HOT FLUSH [None]
  - NECK PAIN [None]
  - PAIN IN EXTREMITY [None]
  - PAIN IN JAW [None]
